FAERS Safety Report 6633139-0 (Version None)
Quarter: 2010Q1

REPORT INFORMATION
  Report Type: 
  Country: None (occurrence: None)
  Receive Date: 20100312
  Receipt Date: 20100302
  Transmission Date: 20100710
  Serious: Yes (Other)
  Sender: FDA-Public Use
  Company Number: PHBS2007BR17988

PATIENT
  Sex: Female
  Weight: 71 kg

DRUGS (6)
  1. DIOVAN [Suspect]
     Indication: HYPERTENSION
     Dosage: 160 MG, QD
     Route: 048
     Dates: start: 20050101
  2. DIOVAN [Suspect]
     Dosage: 320 MG, UNK
  3. BROMAZEPAM [Concomitant]
     Dosage: UNK, QD
     Route: 048
  4. ATENOLOL [Concomitant]
     Dosage: 100 MG, QD
     Route: 048
  5. MINIPRESS [Concomitant]
     Dosage: UNK, QD
     Route: 048
  6. REBETOL [Concomitant]
     Dosage: UNK, QD
     Route: 048

REACTIONS (5)
  - BLOOD PRESSURE INADEQUATELY CONTROLLED [None]
  - CARDIAC OPERATION [None]
  - CATHETERISATION VENOUS [None]
  - HYPERTENSION [None]
  - VENOUS THROMBOSIS [None]
